FAERS Safety Report 7314282-X (Version None)
Quarter: 2011Q1

REPORT INFORMATION
  Report Type: 
  Country: None (occurrence: None)
  Receive Date: 20110225
  Receipt Date: 20100706
  Transmission Date: 20110831
  Serious: No
  Sender: FDA-Public Use
  Company Number: US-MYLANLABS-2010S1012014

PATIENT
  Age: 17 Year
  Sex: Male

DRUGS (3)
  1. CLARAVIS [Suspect]
     Indication: ACNE
     Route: 048
     Dates: start: 20100313, end: 20100412
  2. AMNESTEEM [Suspect]
     Route: 048
     Dates: start: 20100511, end: 20100610
  3. AMNESTEEM [Suspect]
     Indication: ACNE
     Route: 048
     Dates: start: 20100413, end: 20100510

REACTIONS (2)
  - EPISTAXIS [None]
  - BACK PAIN [None]
